FAERS Safety Report 8369585-7 (Version None)
Quarter: 2012Q1

REPORT INFORMATION
  Report Type: 
  Country: None (occurrence: None)
  Receive Date: 20120323
  Receipt Date: 20110624
  Transmission Date: 20120608
  Serious: Yes (Hospitalization, Other)
  Sender: FDA-Public Use
  Company Number: 163-21880-11012509

PATIENT
  Age: 59 Year
  Sex: Female

DRUGS (3)
  1. REVLIMID [Suspect]
     Indication: MULTIPLE MYELOMA
     Dosage: 25 MG, DAILY FOR 21 DAYS, PO, 25 MG, QD 14 DAYS ON, 7 DAYS OFF, PO
     Route: 048
     Dates: start: 20100920
  2. REVLIMID [Suspect]
     Indication: MULTIPLE MYELOMA
     Dosage: 25 MG, DAILY FOR 21 DAYS, PO, 25 MG, QD 14 DAYS ON, 7 DAYS OFF, PO
     Route: 048
     Dates: start: 20110401
  3. REVLIMID [Suspect]

REACTIONS (6)
  - PULMONARY EMBOLISM [None]
  - THROMBOSIS [None]
  - PNEUMONIA [None]
  - FULL BLOOD COUNT DECREASED [None]
  - THROMBOCYTOPENIA [None]
  - WHITE BLOOD CELL COUNT DECREASED [None]
